FAERS Safety Report 13879693 (Version 1)
Quarter: 2017Q3

REPORT INFORMATION
  Report Type: Report from Study
  Country: NL (occurrence: NL)
  Receive Date: 20170818
  Receipt Date: 20170818
  Transmission Date: 20171127
  Serious: Yes (Hospitalization)
  Sender: FDA-Public Use
  Company Number: NL-ROCHE-1971577

PATIENT
  Age: 74 Year
  Sex: Female

DRUGS (3)
  1. BEVACIZUMAB. [Suspect]
     Active Substance: BEVACIZUMAB
     Indication: COLORECTAL CANCER METASTATIC
     Route: 042
     Dates: start: 20170703
  2. CAPECITABINE. [Suspect]
     Active Substance: CAPECITABINE
     Indication: COLORECTAL CANCER METASTATIC
     Dosage: LAST DOSE 11/JUL/2017
     Route: 048
     Dates: start: 20170703
  3. OXALIPLATIN. [Suspect]
     Active Substance: OXALIPLATIN
     Indication: COLORECTAL CANCER METASTATIC
     Route: 065
     Dates: start: 20170703

REACTIONS (1)
  - Enteritis [Recovered/Resolved]

NARRATIVE: CASE EVENT DATE: 20170711
